FAERS Safety Report 4479551-X (Version None)
Quarter: 2004Q4

REPORT INFORMATION
  Report Type: 
  Country: None (occurrence: None)
  Receive Date: 20041018
  Receipt Date: 20041005
  Transmission Date: 20050328
  Serious: Yes (Hospitalization)
  Sender: FDA-Public Use
  Company Number: 2004075080

PATIENT
  Sex: Female

DRUGS (10)
  1. AMLODIPINE [Suspect]
     Indication: ILL-DEFINED DISORDER
     Dosage: 10 MG (10 MG, 1 IN 1 D) ORAL
     Route: 048
     Dates: start: 20020918, end: 20040827
  2. LEVOTHYROXINE SODIUM [Concomitant]
  3. SENNA [Concomitant]
  4. ZOPICLONE [Concomitant]
  5. VENLAFAXINE HCL [Concomitant]
  6. FUROSEMIDE [Concomitant]
  7. DIGOXIN [Concomitant]
  8. ACETYLSALICYLIC ACID [Concomitant]
  9. OLANZAPINE [Concomitant]
  10. LANSOPRAZOLE [Concomitant]

REACTIONS (1)
  - JOINT SWELLING [None]
